FAERS Safety Report 9816946 (Version 2)
Quarter: 2014Q1

REPORT INFORMATION
  Report Type: Spontaneous
  Country: US (occurrence: US)
  Receive Date: 20140114
  Receipt Date: 20140123
  Transmission Date: 20141002
  Serious: Yes (Hospitalization)
  Sender: FDA-Public Use
  Company Number: US-GLAXOSMITHKLINE-A1032447A

PATIENT
  Age: 53 Year
  Sex: Male
  Weight: 95 kg

DRUGS (2)
  1. AVANDIA [Suspect]
     Indication: DIABETES MELLITUS
     Dosage: 4MG TWICE PER DAY
     Route: 048
     Dates: start: 20000330, end: 20090707
  2. AVANDAMET [Suspect]
     Indication: DIABETES MELLITUS
     Route: 048
     Dates: start: 20090707, end: 20100302

REACTIONS (4)
  - Myocardial infarction [Unknown]
  - Cerebrovascular accident [Unknown]
  - Cardiac failure congestive [Unknown]
  - Hypertensive crisis [Unknown]
